FAERS Safety Report 7210896-6 (Version None)
Quarter: 2011Q1

REPORT INFORMATION
  Report Type: 
  Country: None (occurrence: None)
  Receive Date: 20110105
  Receipt Date: 20101229
  Transmission Date: 20110831
  Serious: Yes (Hospitalization)
  Sender: FDA-Public Use
  Company Number: US-US-EMD SERONO, INC.-7014719

PATIENT
  Sex: Female
  Weight: 100 kg

DRUGS (7)
  1. REBIF [Suspect]
     Indication: PRODUCT USED FOR UNKNOWN INDICATION
     Route: 058
     Dates: start: 20100505, end: 20100701
  2. CELEBREX [Concomitant]
  3. METHOTREXATE [Concomitant]
  4. LOTREL [Concomitant]
  5. PREDNISONE [Concomitant]
  6. PROPOXYPHENE HYDROCHLORIDE [Concomitant]
  7. REBIF [Suspect]
     Route: 058
     Dates: start: 20100101, end: 20101201

REACTIONS (4)
  - BALANCE DISORDER [None]
  - NAUSEA [None]
  - HYPOAESTHESIA [None]
  - RENAL MASS [None]
